FAERS Safety Report 12949691 (Version 1)
Quarter: 2016Q4

REPORT INFORMATION
  Report Type: Spontaneous
  Country: US (occurrence: US)
  Receive Date: 20161116
  Receipt Date: 20161116
  Transmission Date: 20170207
  Serious: Yes (Hospitalization)
  Sender: FDA-Public Use
  Company Number: None

PATIENT
  Age: 73 Year
  Sex: Female
  Weight: 75.1 kg

DRUGS (10)
  1. AMLODIPINE [Concomitant]
     Active Substance: AMLODIPINE BESYLATE
  2. CARDIAC PACEMAKER [Concomitant]
  3. LISINOPRIL. [Concomitant]
     Active Substance: LISINOPRIL
  4. ASPIRIN. [Concomitant]
     Active Substance: ASPIRIN
  5. LOVASTATIN. [Concomitant]
     Active Substance: LOVASTATIN
  6. METOPROLOL. [Concomitant]
     Active Substance: METOPROLOL
  7. SPIRIVA [Concomitant]
     Active Substance: TIOTROPIUM BROMIDE MONOHYDRATE
  8. DIGOXIN. [Suspect]
     Active Substance: DIGOXIN
     Indication: ARRHYTHMIA
     Dosage: ?          OTHER STRENGTH:MCG;QUANTITY:1 CAPSULE(S);?
     Route: 048
     Dates: start: 20161101, end: 20161111
  9. WARFARIN [Concomitant]
     Active Substance: WARFARIN
  10. AMIODARONE [Concomitant]
     Active Substance: AMIODARONE

REACTIONS (4)
  - Toxicity to various agents [None]
  - Nausea [None]
  - Dehydration [None]
  - Cardioactive drug level increased [None]

NARRATIVE: CASE EVENT DATE: 20161114
